FAERS Safety Report 8857979 (Version 2)
Quarter: 2013Q3

REPORT INFORMATION
  Report Type: Spontaneous
  Country: US (occurrence: US)
  Receive Date: 20121024
  Receipt Date: 20130930
  Transmission Date: 20140515
  Serious: No
  Sender: FDA-Public Use
  Company Number: US-AMGEN-USASP2012004308

PATIENT
  Age: 52 Year
  Sex: Female
  Weight: 99.77 kg

DRUGS (8)
  1. ENBREL [Suspect]
     Indication: RHEUMATOID ARTHRITIS
     Dosage: 50 MG, QWK
     Route: 058
     Dates: start: 20110401
  2. PLAQUENIL                          /00072602/ [Concomitant]
     Dosage: 200 MG, UNK
  3. MYCOPHENOLATE [Concomitant]
     Dosage: 250 MG, UNK
  4. VITAMIN D                          /00107901/ [Concomitant]
     Dosage: 50000 IU, UNK
  5. CENTRUM                            /00554501/ [Concomitant]
     Dosage: UNK
  6. VITAMIN C                          /00008001/ [Concomitant]
     Dosage: 250 MG, UNK
  7. FLOVENT [Concomitant]
     Dosage: 110 MUG, UNK
  8. PROAIR HFA [Concomitant]
     Dosage: UNK

REACTIONS (3)
  - Productive cough [Unknown]
  - Respiratory tract infection [Unknown]
  - Nasopharyngitis [Unknown]
